FAERS Safety Report 8200769-4 (Version None)
Quarter: 2012Q1

REPORT INFORMATION
  Report Type: 
  Country: None (occurrence: None)
  Receive Date: 20120306
  Receipt Date: 20120220
  Transmission Date: 20120608
  Serious: Yes (Death, Hospitalization, Other)
  Sender: FDA-Public Use
  Company Number: FK201200463

PATIENT
  Age: 73 Year

DRUGS (5)
  1. AMIODARONE HCL [Suspect]
     Indication: CHEST PAIN
     Dosage: 200 MG, PER 24 HOUR,
  2. ROSUVASTATIN [Suspect]
     Indication: PRODUCT USED FOR UNKNOWN INDICATION
     Dosage: 20 MG, PER 24 HOUR,
  3. ACENOCOUMAROL (ACENOOOUMAROL) [Concomitant]
  4. CALCIUM W/COLECALCIFEROL (CALCIUM D3 /01483701/) [Concomitant]
  5. FENOFIBRATE [Suspect]
     Indication: CHEST PAIN
     Dosage: 160 MG,

REACTIONS (4)
  - HEPATIC FAILURE [None]
  - DRUG INTERACTION [None]
  - BLOOD CREATINE INCREASED [None]
  - RHABDOMYOLYSIS [None]
